FAERS Safety Report 16873762 (Version 2)
Quarter: 2019Q4

REPORT INFORMATION
  Report Type: Spontaneous
  Country: US (occurrence: US)
  Receive Date: 20191001
  Receipt Date: 20191009
  Transmission Date: 20200122
  Serious: No
  Sender: FDA-Public Use
  Company Number: US-NEPHRON STERILE COMPOUNDING CENTER-2075130

PATIENT
  Age: 63 Year
  Sex: Female
  Weight: 69 kg

DRUGS (12)
  1. SUCCINYLCHOLINE CHLORIDE. [Concomitant]
     Active Substance: SUCCINYLCHOLINE CHLORIDE
     Route: 040
     Dates: start: 20190918, end: 20190918
  2. ROCURONIUM BROMIDE. [Suspect]
     Active Substance: ROCURONIUM BROMIDE
     Indication: CHOLECYSTECTOMY
     Route: 040
     Dates: start: 20190918, end: 20190918
  3. LIDOCAINE. [Concomitant]
     Active Substance: LIDOCAINE
     Route: 040
     Dates: start: 20190918, end: 20190918
  4. CLINDAMYCIN. [Concomitant]
     Active Substance: CLINDAMYCIN
     Route: 040
     Dates: start: 20190918, end: 20190918
  5. SEVOFLURANE. [Concomitant]
     Active Substance: SEVOFLURANE
     Route: 055
     Dates: start: 20190918, end: 20190918
  6. NEOSTIGMINE METHYLSULFATE. [Interacting]
     Active Substance: NEOSTIGMINE METHYLSULFATE
     Route: 040
     Dates: start: 20190918, end: 20190918
  7. ONDANSETRON [Concomitant]
     Active Substance: ONDANSETRON
     Route: 040
     Dates: start: 20190918, end: 20190918
  8. ROBINUL [Interacting]
     Active Substance: GLYCOPYRROLATE
     Route: 040
     Dates: start: 20190918, end: 20190918
  9. DECADRON [Concomitant]
     Active Substance: DEXAMETHASONE
     Route: 040
     Dates: start: 20190918, end: 20190918
  10. PROPOFOL. [Concomitant]
     Active Substance: PROPOFOL
     Route: 040
     Dates: start: 20190918, end: 20190918
  11. MIDAZOLAM [Concomitant]
     Active Substance: MIDAZOLAM HYDROCHLORIDE
     Route: 040
     Dates: start: 20190918, end: 20190918
  12. FENTANYL. [Concomitant]
     Active Substance: FENTANYL
     Route: 040
     Dates: start: 20190918, end: 20190918

REACTIONS (1)
  - Therapeutic product effect increased [Recovered/Resolved]

NARRATIVE: CASE EVENT DATE: 20190918
